FAERS Safety Report 9263078 (Version 1)
Quarter: 2013Q1

REPORT INFORMATION
  Report Type: Spontaneous
  Country: US (occurrence: None)
  Receive Date: 20121212
  Receipt Date: 20121212
  Transmission Date: 20140127
  Serious: No
  Sender: FDA-Public Use
  Company Number: 1209USA001401

PATIENT
  Age: 60 Year
  Sex: Male
  Weight: 78 kg

DRUGS (3)
  1. PEGINTRON [Suspect]
     Route: 058
  2. VICTRELIS [Suspect]
     Route: 048
     Dates: start: 20120320
  3. RIBAVIRIN [Suspect]
     Dosage: 200 MG, UNK

REACTIONS (5)
  - Musculoskeletal pain [None]
  - Pain [None]
  - Pain [None]
  - Decreased appetite [None]
  - Product quality issue [None]
